FAERS Safety Report 12821614 (Version 1)
Quarter: 2016Q4

REPORT INFORMATION
  Report Type: Spontaneous
  Country: IR (occurrence: IR)
  Receive Date: 20161007
  Receipt Date: 20161007
  Transmission Date: 20170207
  Serious: Yes (Hospitalization)
  Sender: FDA-Public Use
  Company Number: IR-SUN PHARMACEUTICAL INDUSTRIES LTD-2016RR-125426

PATIENT
  Age: 20 Year
  Sex: Male

DRUGS (3)
  1. TRAMADOL. [Suspect]
     Active Substance: TRAMADOL
     Indication: PRODUCT USED FOR UNKNOWN INDICATION
     Dosage: FEW TABLETS
     Route: 048
  2. ZNP BAR [Suspect]
     Active Substance: PYRITHIONE ZINC
     Indication: PRODUCT USED FOR UNKNOWN INDICATION
     Dosage: FOUR POCKETS
     Route: 048
  3. ALPRAZOLAM. [Suspect]
     Active Substance: ALPRAZOLAM
     Indication: PRODUCT USED FOR UNKNOWN INDICATION
     Dosage: FEW TABLETS
     Route: 048

REACTIONS (6)
  - Loss of consciousness [Recovering/Resolving]
  - Suicide attempt [Unknown]
  - Hepatotoxicity [Recovering/Resolving]
  - Sinus tachycardia [Recovering/Resolving]
  - Chemical poisoning [Recovering/Resolving]
  - Intentional overdose [Recovering/Resolving]
